FAERS Safety Report 8117188 (Version 3)
Quarter: 2013Q4

REPORT INFORMATION
  Report Type: Spontaneous
  Country: US (occurrence: US)
  Receive Date: 20110901
  Receipt Date: 20131212
  Transmission Date: 20140711
  Serious: Yes (Other)
  Sender: FDA-Public Use
  Company Number: US-ROCHE-798745

PATIENT
  Age: 39 Year
  Sex: Male
  Weight: 108.96 kg

DRUGS (2)
  1. ACCUTANE [Suspect]
     Indication: ACNE
     Route: 065
     Dates: start: 19850320, end: 19850612
  2. ACCUTANE [Suspect]
     Route: 065
     Dates: start: 19861101, end: 19870107

REACTIONS (5)
  - Colitis ulcerative [Unknown]
  - Depression [Not Recovered/Not Resolved]
  - Injury [Unknown]
  - Inflammatory bowel disease [Unknown]
  - Irritable bowel syndrome [Unknown]
